FAERS Safety Report 7592162-2 (Version None)
Quarter: 2011Q3

REPORT INFORMATION
  Report Type: 
  Country: None (occurrence: None)
  Receive Date: 20110706
  Receipt Date: 20110622
  Transmission Date: 20111222
  Serious: Yes (Life-Threatening, Other)
  Sender: FDA-Public Use
  Company Number: CN-JNJFOC-20110700640

PATIENT
  Age: 15 Year
  Sex: Male

DRUGS (5)
  1. REMICADE [Suspect]
     Route: 042
  2. REMICADE [Suspect]
     Route: 042
     Dates: start: 20110622, end: 20110622
  3. REMICADE [Suspect]
     Dosage: SEVENTH INFUSION
     Route: 042
     Dates: start: 20110201
  4. DEXAMETHASONE [Concomitant]
     Indication: PREMEDICATION
     Route: 042
     Dates: start: 20110622, end: 20110622
  5. REMICADE [Suspect]
     Indication: ANKYLOSING SPONDYLITIS
     Dosage: FIFTH INFUSION
     Route: 042

REACTIONS (7)
  - LARYNGEAL OEDEMA [None]
  - PYREXIA [None]
  - DYSPNOEA [None]
  - INFUSION RELATED REACTION [None]
  - HYPERHIDROSIS [None]
  - PALPITATIONS [None]
  - FLUSHING [None]
